FAERS Safety Report 9922370 (Version 1)
Quarter: 2014Q1

REPORT INFORMATION
  Report Type: Spontaneous
  Country: US (occurrence: None)
  Receive Date: 20140224
  Receipt Date: 20140224
  Transmission Date: 20141002
  Serious: Yes (Other)
  Sender: FDA-Public Use
  Company Number: None

PATIENT
  Age: 53 Year
  Sex: Female
  Weight: 70.31 kg

DRUGS (1)
  1. LIPTRUZET [Suspect]
     Indication: BLOOD CHOLESTEROL INCREASED
     Route: 048
     Dates: start: 20130914, end: 20130926

REACTIONS (7)
  - Headache [None]
  - Vomiting [None]
  - Nausea [None]
  - Malaise [None]
  - Product quality issue [None]
  - Blood pressure increased [None]
  - Erythema [None]
